FAERS Safety Report 9298824 (Version 1)
Quarter: 2013Q1

REPORT INFORMATION
  Report Type: Spontaneous
  Country: US (occurrence: None)
  Receive Date: 20121227
  Receipt Date: 20121227
  Transmission Date: 20140127
  Serious: Yes (Hospitalization)
  Sender: FDA-Public Use
  Company Number: PHEH2012US015880

PATIENT
  Age: 72 Year
  Sex: Male

DRUGS (4)
  1. AFINITOR [Suspect]
     Indication: CARCINOID TUMOUR
     Route: 048
     Dates: start: 201205
  2. ENALAPRIL [Concomitant]
  3. METFORMIN (METFORMIN) [Concomitant]
  4. PREDNISONE (PREDNISONE) [Concomitant]

REACTIONS (5)
  - Swollen tongue [None]
  - Neoplasm [None]
  - Drug ineffective [None]
  - Malignant neoplasm progression [None]
  - Metastases to liver [None]
